FAERS Safety Report 19020134 (Version 1)
Quarter: 2021Q1

REPORT INFORMATION
  Report Type: Report from Study
  Country: US (occurrence: US)
  Receive Date: 20210317
  Receipt Date: 20210317
  Transmission Date: 20210420
  Serious: Yes (Hospitalization)
  Sender: FDA-Public Use
  Company Number: US-GILEAD-2021-0520413

PATIENT
  Age: 22 Year
  Sex: Female

DRUGS (5)
  1. ALBUTEROL [SALBUTAMOL] [Concomitant]
     Active Substance: ALBUTEROL
  2. AZTREONAM LYSINE [Suspect]
     Active Substance: AZTREONAM LYSINE
     Indication: BRONCHIECTASIS
     Dosage: 1 ML, TID, 28 DAYS ON AND 28 DAYS OFF
     Route: 055
  3. MIRTAZAPINE. [Concomitant]
     Active Substance: MIRTAZAPINE
  4. TOBRAMYCIN. [Concomitant]
     Active Substance: TOBRAMYCIN
  5. MUCINEX [Concomitant]
     Active Substance: GUAIFENESIN

REACTIONS (2)
  - Biopsy lung [Unknown]
  - Off label use [Not Recovered/Not Resolved]
